FAERS Safety Report 5167663-7 (Version None)
Quarter: 2006Q4

REPORT INFORMATION
  Report Type: 
  Country: None (occurrence: None)
  Receive Date: 20061204
  Receipt Date: 20061204
  Transmission Date: 20070319
  Serious: Yes (Other)
  Sender: FDA-Public Use
  Company Number: None

PATIENT
  Sex: Female
  Weight: 72.5755 kg

DRUGS (2)
  1. ACETAMINOPHEN [Suspect]
     Indication: HEADACHE
     Dosage: 2-4 1-2 TIMES A WEEK PO
     Route: 048
     Dates: start: 20060818, end: 20061110
  2. ACETAMINOPHEN [Suspect]
     Indication: PAIN
     Dosage: 2-4 1-2 TIMES A WEEK PO
     Route: 048
     Dates: start: 20060818, end: 20061110

REACTIONS (4)
  - ABDOMINAL DISTENSION [None]
  - ABDOMINAL PAIN [None]
  - PHARMACEUTICAL PRODUCT COMPLAINT [None]
  - RECTAL HAEMORRHAGE [None]
